FAERS Safety Report 25665169 (Version 1)
Quarter: 2025Q3

REPORT INFORMATION
  Report Type: Spontaneous
  Country: US (occurrence: None)
  Receive Date: 20250810
  Receipt Date: 20250810
  Transmission Date: 20251020
  Serious: Yes (Disabling, Other)
  Sender: FDA-CTU
  Company Number: None

PATIENT
  Age: 78 Year
  Sex: Male
  Weight: 95.4 kg

DRUGS (16)
  1. HYDROXYCHLOROQUINE [Suspect]
     Active Substance: HYDROXYCHLOROQUINE
     Indication: Osteoarthritis
     Dosage: FREQUENCY : DAILY;?
     Route: 048
     Dates: start: 20250709, end: 20250724
  2. DEVICE [Concomitant]
     Active Substance: DEVICE
  3. INSULIN NOS [Concomitant]
     Active Substance: INSULIN NOS
  4. atorvastatin 10 mg, [Concomitant]
  5. Farxiga 10 mg, [Concomitant]
  6. Tresiba 58 unit, [Concomitant]
  7. Kerendia 20 mg, [Concomitant]
  8. Propranolol 160 mg, [Concomitant]
  9. lisinopril 40, [Concomitant]
  10. Mounjaro 10/wk, [Concomitant]
  11. Sildenafil 20, [Concomitant]
  12. Melatonin 5 to 8 mg, [Concomitant]
  13. Mirabegron 50, [Concomitant]
  14. B12 [Concomitant]
  15. FOLATE SODIUM [Concomitant]
     Active Substance: FOLATE SODIUM
  16. Glucosamine + Chondroitin [Concomitant]

REACTIONS (4)
  - Hypoacusis [None]
  - Tinnitus [None]
  - Ear discomfort [None]
  - Tympanic membrane disorder [None]

NARRATIVE: CASE EVENT DATE: 20250724
